FAERS Safety Report 5581688-9 (Version None)
Quarter: 2008Q1

REPORT INFORMATION
  Report Type: 
  Country: None (occurrence: None)
  Receive Date: 20080104
  Receipt Date: 20071223
  Transmission Date: 20080703
  Serious: Yes (Hospitalization, Other)
  Sender: FDA-Public Use
  Company Number: US-AMGEN-QUU258065

PATIENT
  Sex: Male

DRUGS (1)
  1. ENBREL [Suspect]
     Indication: ANKYLOSING SPONDYLITIS
     Route: 058
     Dates: start: 20050301

REACTIONS (6)
  - ARTHRALGIA [None]
  - COLONOSCOPY ABNORMAL [None]
  - DYSPEPSIA [None]
  - HAEMATOCHEZIA [None]
  - JOINT STABILISATION [None]
  - JOINT SWELLING [None]
